FAERS Safety Report 6063527-5 (Version None)
Quarter: 2009Q1

REPORT INFORMATION
  Report Type: 
  Country: None (occurrence: None)
  Receive Date: 20090203
  Receipt Date: 20090122
  Transmission Date: 20090719
  Serious: Yes (Hospitalization, Other)
  Sender: FDA-Public Use
  Company Number: US-ELI_LILLY_AND_COMPANY-US200901004093

PATIENT
  Sex: Male

DRUGS (4)
  1. ZYPREXA [Suspect]
     Indication: MENTAL DISORDER
     Dosage: 40 MG, 2/D
     Dates: start: 20000101, end: 20080801
  2. ZYPREXA [Suspect]
     Dosage: 100 MG, 2/D
  3. WELLBUTRIN SR [Concomitant]
     Indication: MENTAL DISORDER
     Dosage: 200 MG, 2/D
     Route: 048
     Dates: end: 20080101
  4. QUETIAPINE FUMARATE [Concomitant]
     Indication: MENTAL DISORDER
     Dosage: 400 MG, 2/D

REACTIONS (7)
  - BALANCE DISORDER [None]
  - CARDIAC DISORDER [None]
  - LIVER DISORDER [None]
  - NERVOUS SYSTEM DISORDER [None]
  - OVERDOSE [None]
  - SKIN PAPILLOMA [None]
  - VISUAL ACUITY REDUCED [None]
